FAERS Safety Report 12070845 (Version 2)
Quarter: 2016Q1

REPORT INFORMATION
  Report Type: Report from Study
  Country: PH (occurrence: PH)
  Receive Date: 20160211
  Receipt Date: 20160216
  Transmission Date: 20160526
  Serious: Yes (Other)
  Sender: FDA-Public Use
  Company Number: PHHY2016PH016522

PATIENT
  Age: 37 Year
  Sex: Female

DRUGS (2)
  1. EXJADE [Suspect]
     Active Substance: DEFERASIROX
     Indication: THALASSAEMIA
     Dosage: 250 MG, UNK
     Route: 048
     Dates: start: 201512
  2. EXJADE [Suspect]
     Active Substance: DEFERASIROX
     Dosage: 1 DF, UNK
     Route: 048

REACTIONS (1)
  - Petechiae [Recovered/Resolved]
